FAERS Safety Report 7513453-7 (Version None)
Quarter: 2011Q2

REPORT INFORMATION
  Report Type: 
  Country: None (occurrence: None)
  Receive Date: 20110531
  Receipt Date: 20110513
  Transmission Date: 20111010
  Serious: No
  Sender: FDA-Public Use
  Company Number: US-UCBSA-032699

PATIENT
  Sex: Male
  Weight: 76.29 kg

DRUGS (5)
  1. TRILEPTAL [Concomitant]
     Dates: start: 20100421, end: 20100427
  2. TRILEPTAL [Concomitant]
     Dates: start: 20100428, end: 20100701
  3. LACOSAMIDE [Suspect]
     Indication: EPILEPSY
     Route: 048
     Dates: start: 20080925
  4. TRILEPTAL [Concomitant]
     Indication: CONVULSION
     Dates: start: 20100406, end: 20100413
  5. TRILEPTAL [Concomitant]
     Dates: start: 20100414, end: 20100420

REACTIONS (1)
  - SYNCOPE [None]
